FAERS Safety Report 25494919 (Version 1)
Quarter: 2025Q2

REPORT INFORMATION
  Report Type: Report from Study
  Country: CA (occurrence: CA)
  Receive Date: 20250630
  Receipt Date: 20250630
  Transmission Date: 20250717
  Serious: Yes (Other)
  Sender: SANDOZ
  Company Number: CA-SANDOZ-SDZ2025CA045000

PATIENT
  Sex: Female

DRUGS (1)
  1. JUBBONTI [Suspect]
     Active Substance: DENOSUMAB-BBDZ
     Indication: Product used for unknown indication
     Route: 058

REACTIONS (11)
  - Capillary fragility [Unknown]
  - Petechiae [Unknown]
  - Gingival pain [Unknown]
  - Nasopharyngitis [Unknown]
  - Cough [Unknown]
  - Bone pain [Unknown]
  - Epistaxis [Unknown]
  - Pain in jaw [Unknown]
  - Arthralgia [Unknown]
  - Pruritus [Unknown]
  - Pain in extremity [Unknown]
